FAERS Safety Report 5669617-0 (Version None)
Quarter: 2008Q1

REPORT INFORMATION
  Report Type: 
  Country: None (occurrence: None)
  Receive Date: 20080317
  Receipt Date: 20080313
  Transmission Date: 20080703
  Serious: Yes (Death, Hospitalization)
  Sender: FDA-Public Use
  Company Number: PHEH2008US01753

PATIENT
  Age: 84 Year
  Sex: Female
  Weight: 44.444 kg

DRUGS (2)
  1. RECLAST [Suspect]
     Indication: OSTEOPOROSIS
     Dosage: 5 MG, ONCE YEARLY
     Route: 042
     Dates: start: 20080101, end: 20080101
  2. STEROIDS NOS [Concomitant]

REACTIONS (6)
  - ASTHENIA [None]
  - INFLUENZA LIKE ILLNESS [None]
  - MALAISE [None]
  - RESPIRATORY FAILURE [None]
  - STEROID WITHDRAWAL SYNDROME [None]
  - WEIGHT DECREASED [None]
